FAERS Safety Report 10030372 (Version 2)
Quarter: 2014Q1

REPORT INFORMATION
  Report Type: Spontaneous
  Country: US (occurrence: US)
  Receive Date: 20140323
  Receipt Date: 20140323
  Transmission Date: 20141002
  Serious: No
  Sender: FDA-Public Use
  Company Number: US-ALLERGAN-1306256US

PATIENT
  Sex: Female

DRUGS (9)
  1. LATISSE 0.03% [Suspect]
     Indication: GROWTH OF EYELASHES
     Dosage: 1 GTT EACH EYE DAILY
     Route: 061
  2. K-DUR [Concomitant]
  3. DIOVAN [Concomitant]
  4. ESTRASE [Concomitant]
  5. REBAXON [Concomitant]
  6. PREDNISONE [Concomitant]
  7. MOBIC [Concomitant]
  8. VISALPRIL [Concomitant]
  9. ANTIBIOTICS [Concomitant]

REACTIONS (1)
  - Madarosis [Not Recovered/Not Resolved]
